FAERS Safety Report 7327911-1 (Version None)
Quarter: 2011Q1

REPORT INFORMATION
  Report Type: 
  Country: None (occurrence: None)
  Receive Date: 20110218
  Receipt Date: 20110204
  Transmission Date: 20110831
  Serious: Yes (Hospitalization)
  Sender: FDA-Public Use
  Company Number: 026936

PATIENT
  Sex: Male

DRUGS (1)
  1. CIMZIA [Suspect]
     Indication: CROHN'S DISEASE
     Dosage: (400(400 1X/MONTH SUBCUTANEOUS)
     Route: 058
     Dates: end: 20101101

REACTIONS (2)
  - ABDOMINAL WOUND DEHISCENCE [None]
  - ABDOMINAL OPERATION [None]
